FAERS Safety Report 7062416-7 (Version None)
Quarter: 2010Q4

REPORT INFORMATION
  Report Type: 
  Country: None (occurrence: None)
  Receive Date: 20101026
  Receipt Date: 20091101
  Transmission Date: 20110411
  Serious: Yes (Other)
  Sender: FDA-Public Use
  Company Number: US-PFIZER INC-2009293209

PATIENT
  Sex: Male
  Weight: 122.01 kg

DRUGS (4)
  1. LIPITOR [Suspect]
     Indication: BLOOD CHOLESTEROL INCREASED
     Route: 048
     Dates: start: 20060101
  2. METFORMIN HYDROCHLORIDE [Concomitant]
     Dosage: FREQUENCY: 2X/DAY,
  3. TEGRETOL - SLOW RELEASE [Concomitant]
     Indication: CONVULSION
  4. TEGRETOL - SLOW RELEASE [Concomitant]

REACTIONS (1)
  - MUSCULAR WEAKNESS [None]
